FAERS Safety Report 5915344-1 (Version None)
Quarter: 2008Q3

REPORT INFORMATION
  Report Type: 
  Country: None (occurrence: None)
  Receive Date: 20080909
  Receipt Date: 20071115
  Transmission Date: 20090109
  Serious: Yes (Life-Threatening, Other)
  Sender: FDA-Public Use
  Company Number: 163-20785-07120999 (0)

PATIENT
  Age: 74 Year
  Sex: Female

DRUGS (9)
  1. THALOMID [Suspect]
     Indication: MULTIPLE MYELOMA
     Dosage: 100 MG, EVERY EVENING, ORAL
     Route: 048
     Dates: start: 20070614, end: 20071017
  2. ASPIRIN [Concomitant]
  3. IMDUR [Concomitant]
  4. LEXAPRO [Concomitant]
  5. NORVASC [Concomitant]
  6. PEPCID [Concomitant]
  7. SYNTHROID [Concomitant]
  8. NOVOLOG [Concomitant]
  9. LANTUS [Concomitant]

REACTIONS (1)
  - BRADYARRHYTHMIA [None]
